FAERS Safety Report 7094420-7 (Version None)
Quarter: 2010Q4

REPORT INFORMATION
  Report Type: 
  Country: None (occurrence: None)
  Receive Date: 20101102
  Receipt Date: 20101020
  Transmission Date: 20110411
  Serious: Yes (Death)
  Sender: FDA-Public Use
  Company Number: GB-2010-2326

PATIENT
  Age: 71 Year
  Sex: Female
  Weight: 61 kg

DRUGS (7)
  1. NAVELBINE [Suspect]
     Indication: NON-SMALL CELL LUNG CANCER
     Dosage: 25 MG/M2 IV
     Route: 042
     Dates: start: 20091027, end: 20100928
  2. CISPLATIN [Suspect]
     Indication: NON-SMALL CELL LUNG CANCER
  3. ATENOLOL [Concomitant]
  4. DEXAMETHASONE [Concomitant]
  5. IRBESARTAN [Concomitant]
  6. OMEPRAZOLE [Concomitant]
  7. ONDANSETRON [Concomitant]

REACTIONS (1)
  - RENAL FAILURE ACUTE [None]
